FAERS Safety Report 8574875-9 (Version None)
Quarter: 2012Q3

REPORT INFORMATION
  Report Type: 
  Country: None (occurrence: None)
  Receive Date: 20120807
  Receipt Date: 20120727
  Transmission Date: 20120928
  Serious: Yes (Death, Hospitalization)
  Sender: FDA-Public Use
  Company Number: JP-ELI_LILLY_AND_COMPANY-JP201208001468

PATIENT
  Sex: Male
  Weight: 112 kg

DRUGS (11)
  1. ACTOS [Concomitant]
  2. TORSEMIDE [Concomitant]
  3. LAC-B [Concomitant]
  4. SLOW-K [Concomitant]
     Dosage: UNK
     Dates: start: 20110624, end: 20110626
  5. SPIRONOLACTONE [Concomitant]
     Dosage: UNK
     Dates: start: 20110623
  6. AMBRISENTAN [Concomitant]
     Dosage: UNK
     Route: 048
     Dates: start: 20110426, end: 20110427
  7. BERAPROST SODIUM [Concomitant]
     Dosage: UNK
     Route: 048
     Dates: end: 20110531
  8. ADCIRCA [Suspect]
     Dosage: UNK
     Route: 048
     Dates: end: 20110622
  9. AMBRISENTAN [Concomitant]
     Indication: PULMONARY ARTERIAL HYPERTENSION
     Dosage: UNK
     Route: 048
     Dates: start: 20110428, end: 20111019
  10. URSO 250 [Concomitant]
     Dosage: UNK
     Dates: start: 20110708
  11. NEUTROGIN [Concomitant]
     Dosage: UNK
     Dates: start: 20110701, end: 20110716

REACTIONS (1)
  - HEPATIC FAILURE [None]
